FAERS Safety Report 19413693 (Version 1)
Quarter: 2021Q2

REPORT INFORMATION
  Report Type: Spontaneous
  Country: GB (occurrence: GB)
  Receive Date: 20210614
  Receipt Date: 20210614
  Transmission Date: 20210717
  Serious: Yes (Death)
  Sender: FDA-Public Use
  Company Number: GB-PERRIGO-21GB007102

PATIENT

DRUGS (1)
  1. PARACETAMOL [Suspect]
     Active Substance: ACETAMINOPHEN
     Indication: PRODUCT USED FOR UNKNOWN INDICATION
     Dosage: ONE TO BE TAKEN EVERY 4?6 HOURS UP TO FOUR TIMES A DAY
     Route: 065
     Dates: start: 20210503, end: 20210528

REACTIONS (1)
  - Eye pruritus [Fatal]

NARRATIVE: CASE EVENT DATE: 20210504
